FAERS Safety Report 8356995-7 (Version None)
Quarter: 2012Q1

REPORT INFORMATION
  Report Type: 
  Country: None (occurrence: None)
  Receive Date: 20120315
  Receipt Date: 20110617
  Transmission Date: 20120608
  Serious: Yes (Other)
  Sender: FDA-Public Use
  Company Number: PHHY2011US48457

PATIENT
  Age: 62 Year
  Sex: Male

DRUGS (7)
  1. GILENYA [Suspect]
     Indication: MULTIPLE SCLEROSIS
     Dosage: 0.5 MG, QD, ORAL
     Route: 048
     Dates: start: 20110418
  2. LYRICA [Concomitant]
  3. IBUPROFEN [Concomitant]
  4. VITAMIN D [Concomitant]
  5. ACETAMINOPHEN [Concomitant]
  6. VITAMIN TAB [Concomitant]
  7. ASCORBIC ACID [Concomitant]

REACTIONS (2)
  - BALANCE DISORDER [None]
  - MULTIPLE SCLEROSIS RELAPSE [None]
